FAERS Safety Report 9688101 (Version 1)
Quarter: 2013Q4

REPORT INFORMATION
  Report Type: Spontaneous
  Country: US (occurrence: None)
  Receive Date: 20131113
  Receipt Date: 20131113
  Transmission Date: 20140711
  Serious: Yes (Other)
  Sender: FDA-Public Use
  Company Number: None

PATIENT
  Age: 8 Year
  Sex: Female
  Weight: 32.21 kg

DRUGS (1)
  1. SINGULAIR 5MG [Suspect]
     Indication: ASTHMA
     Dosage: 1 PILL ONCE DAILY TAKEN BY MOUTH
     Route: 048
     Dates: start: 20120801, end: 20131112

REACTIONS (8)
  - Insomnia [None]
  - Anxiety [None]
  - Paraesthesia [None]
  - Arthralgia [None]
  - Weight increased [None]
  - Abnormal dreams [None]
  - Thinking abnormal [None]
  - Breast disorder [None]
